FAERS Safety Report 6441749-9 (Version None)
Quarter: 2009Q4

REPORT INFORMATION
  Report Type: 
  Country: None (occurrence: None)
  Receive Date: 20091116
  Receipt Date: 20091112
  Transmission Date: 20100525
  Serious: Yes (Death, Hospitalization)
  Sender: FDA-Public Use
  Company Number: US-BRISTOL-MYERS SQUIBB COMPANY-14843809

PATIENT
  Age: 72 Year
  Sex: Male
  Weight: 136 kg

DRUGS (15)
  1. WARFARIN SODIUM [Suspect]
     Indication: DEEP VEIN THROMBOSIS
     Dosage: 6MG ONE DAY THEN 7.5MG NEXT DAY
     Route: 048
     Dates: start: 20060101, end: 20091019
  2. WARFARIN SODIUM [Suspect]
     Indication: PULMONARY EMBOLISM
     Dosage: 6MG ONE DAY THEN 7.5MG NEXT DAY
     Route: 048
     Dates: start: 20060101, end: 20091019
  3. AMMONIUM LACTATE [Suspect]
     Indication: NEUROPATHY PERIPHERAL
     Route: 061
     Dates: start: 20091019, end: 20091019
  4. BETAMETHASONE [Suspect]
     Indication: NEUROPATHY PERIPHERAL
     Dates: start: 20091016, end: 20091016
  5. METOPROLOL TARTRATE [Suspect]
     Indication: BLOOD PRESSURE
     Route: 048
     Dates: start: 20090801, end: 20091019
  6. FENTANYL-50 [Suspect]
     Indication: NEUROPATHY PERIPHERAL
     Dosage: 1 DF= 1 PATCH; 50 MICROGRAM
     Route: 062
     Dates: start: 20091017, end: 20091020
  7. FENTANYL-50 [Suspect]
     Indication: PAIN IN EXTREMITY
     Dosage: 1 DF= 1 PATCH; 50 MICROGRAM
     Route: 062
     Dates: start: 20091017, end: 20091020
  8. ACETAMINOPHEN AND HYDROCODONE BITARTRATE [Suspect]
     Indication: PAIN
     Dosage: 1 DF= 10/325MG(6 TABS)
     Route: 048
     Dates: start: 20091017, end: 20091020
  9. AMBIEN [Suspect]
     Indication: INSOMNIA
     Route: 048
     Dates: start: 20090101, end: 20091020
  10. UROXATRAL [Suspect]
     Indication: MICTURITION DISORDER
     Route: 048
     Dates: start: 20090301, end: 20091019
  11. OXYCONTIN [Suspect]
     Indication: PAIN
     Dosage: FORM=TABS BID - TID
     Route: 048
     Dates: start: 20030101, end: 20091016
  12. NOVOLOG [Suspect]
     Indication: DIABETES MELLITUS
     Route: 058
     Dates: start: 20070101, end: 20091019
  13. LANTUS [Suspect]
     Indication: DIABETES MELLITUS
     Route: 058
     Dates: start: 20070101, end: 20091019
  14. CYMBALTA [Suspect]
     Indication: INSOMNIA
     Dates: end: 20091019
  15. DIPROLENE [Suspect]
     Route: 065
     Dates: end: 20091019

REACTIONS (11)
  - ANEURYSM [None]
  - BRAIN DEATH [None]
  - COAGULOPATHY [None]
  - COLD SWEAT [None]
  - FALL [None]
  - FEELING ABNORMAL [None]
  - HAEMORRHAGIC STROKE [None]
  - HYPERTENSION [None]
  - INSOMNIA [None]
  - MALAISE [None]
  - RESPIRATORY ARREST [None]
